FAERS Safety Report 6579724-6 (Version None)
Quarter: 2010Q1

REPORT INFORMATION
  Report Type: 
  Country: None (occurrence: None)
  Receive Date: 20100212
  Receipt Date: 20100208
  Transmission Date: 20100710
  Serious: Yes (Hospitalization)
  Sender: FDA-Public Use
  Company Number: A0836486A

PATIENT
  Sex: Female

DRUGS (2)
  1. TYKERB [Suspect]
     Dosage: 1250MG PER DAY
     Route: 048
     Dates: start: 20090811, end: 20091219
  2. XELODA [Suspect]
     Route: 065
     Dates: end: 20091219

REACTIONS (4)
  - CHOLELITHIASIS [None]
  - INFECTION [None]
  - LOCALISED INFECTION [None]
  - PYREXIA [None]
